FAERS Safety Report 9104068 (Version 1)
Quarter: 2013Q1

REPORT INFORMATION
  Report Type: Spontaneous
  Country: IL (occurrence: IL)
  Receive Date: 20130219
  Receipt Date: 20130219
  Transmission Date: 20140127
  Serious: Yes (Hospitalization)
  Sender: FDA-Public Use
  Company Number: PHHY2013IL015766

PATIENT
  Age: 89 Year
  Sex: Female

DRUGS (1)
  1. SANDOSTATIN LAR [Suspect]
     Indication: CARCINOID TUMOUR
     Dosage: 30 MG, ONCE IN FOUR WEEK
     Dates: start: 20070805, end: 20130124

REACTIONS (2)
  - Femur fracture [Unknown]
  - Diarrhoea [Unknown]
